FAERS Safety Report 16841267 (Version 1)
Quarter: 2019Q3

REPORT INFORMATION
  Report Type: Report from Study
  Country: US (occurrence: US)
  Receive Date: 20190923
  Receipt Date: 20190923
  Transmission Date: 20191005
  Serious: No
  Sender: FDA-Public Use
  Company Number: PHEH2019US039015

PATIENT
  Sex: Female

DRUGS (1)
  1. COSENTYX [Suspect]
     Active Substance: SECUKINUMAB
     Indication: CARDIAC FAILURE
     Dosage: UNK
     Route: 058

REACTIONS (3)
  - Confusional state [Unknown]
  - Skin lesion [Unknown]
  - Product use in unapproved indication [Unknown]
